FAERS Safety Report 20624130 (Version 1)
Quarter: 2022Q1

REPORT INFORMATION
  Report Type: Spontaneous
  Country: US (occurrence: US)
  Receive Date: 20220322
  Receipt Date: 20220322
  Transmission Date: 20220423
  Serious: No
  Sender: FDA-Public Use
  Company Number: US-SA-SAC20220314001777

PATIENT
  Age: 17 Year
  Sex: Female

DRUGS (1)
  1. DUPIXENT [Suspect]
     Active Substance: DUPILUMAB
     Indication: Dermatitis atopic
     Dosage: 300 MG, QOW
     Route: 058
     Dates: start: 20211006

REACTIONS (6)
  - Lip swelling [Unknown]
  - Peripheral swelling [Unknown]
  - Eye swelling [Unknown]
  - Erythema [Unknown]
  - Keratitis [Unknown]
  - Product use issue [Unknown]

NARRATIVE: CASE EVENT DATE: 20211006
